FAERS Safety Report 15497463 (Version 2)
Quarter: 2018Q4

REPORT INFORMATION
  Report Type: Spontaneous
  Country: CA (occurrence: CA)
  Receive Date: 20181015
  Receipt Date: 20181017
  Transmission Date: 20190205
  Serious: Yes (Hospitalization)
  Sender: FDA-Public Use
  Company Number: CA-ORION CORPORATION ORION PHARMA-TREX2018-0366

PATIENT
  Age: 54 Year
  Sex: Female

DRUGS (9)
  1. METHOTREXATE (TRADE NAME UNKNOWN) [Suspect]
     Active Substance: METHOTREXATE
     Route: 058
     Dates: start: 20170301, end: 201711
  2. METHOTREXATE (TRADE NAME UNKNOWN) [Suspect]
     Active Substance: METHOTREXATE
     Route: 048
     Dates: start: 2018
  3. XELJANZ [Suspect]
     Active Substance: TOFACITINIB CITRATE
     Route: 048
     Dates: start: 20171127, end: 20180127
  4. METHOTREXATE (TRADE NAME UNKNOWN) [Suspect]
     Active Substance: METHOTREXATE
     Indication: RHEUMATOID ARTHRITIS
     Route: 048
     Dates: end: 20180127
  5. PROBIOTICS [Concomitant]
     Active Substance: PROBIOTICS NOS
     Route: 065
  6. CLINDAMYCIN. [Concomitant]
     Active Substance: CLINDAMYCIN
     Route: 065
     Dates: start: 2018
  7. METHOTREXATE (TRADE NAME UNKNOWN) [Suspect]
     Active Substance: METHOTREXATE
     Route: 058
     Dates: start: 20171127
  8. XELJANZ [Suspect]
     Active Substance: TOFACITINIB CITRATE
     Route: 048
     Dates: start: 20180207, end: 20180829
  9. XELJANZ [Suspect]
     Active Substance: TOFACITINIB CITRATE
     Indication: RHEUMATOID ARTHRITIS
     Route: 048
     Dates: start: 20171103, end: 20171117

REACTIONS (13)
  - Gingival discomfort [Unknown]
  - Tooth infection [Unknown]
  - Epstein-Barr virus infection [Unknown]
  - Gingival pain [Unknown]
  - Root canal infection [Not Recovered/Not Resolved]
  - Drug effect incomplete [Unknown]
  - Fatigue [Unknown]
  - Gingivitis [Recovered/Resolved]
  - Acne [Not Recovered/Not Resolved]
  - Herpes zoster [Recovered/Resolved]
  - Chills [Recovered/Resolved]
  - Oral pain [Unknown]
  - Rash [Unknown]

NARRATIVE: CASE EVENT DATE: 2017
